FAERS Safety Report 18207521 (Version 1)
Quarter: 2020Q3

REPORT INFORMATION
  Report Type: Spontaneous
  Country: US (occurrence: US)
  Receive Date: 20200828
  Receipt Date: 20200828
  Transmission Date: 20201103
  Serious: Yes (Death)
  Sender: FDA-Public Use
  Company Number: None

PATIENT
  Age: 89 Year
  Weight: 54.43 kg

DRUGS (3)
  1. KOGENATE FS [Suspect]
     Active Substance: ANTIHEMOPHILIC FACTOR, HUMAN RECOMBINANT
     Indication: FACTOR VIII DEFICIENCY
     Dosage: ?          OTHER FREQUENCY:1 HOUR PRIOR TO;?
     Route: 042
     Dates: start: 20191106, end: 20191106
  2. KOGENATE FS [Suspect]
     Active Substance: ANTIHEMOPHILIC FACTOR, HUMAN RECOMBINANT
     Indication: FACTOR VIII DEFICIENCY
     Dosage: ?          OTHER FREQUENCY:1 HOUR PRIOR TO;?
     Route: 042
     Dates: start: 20191106, end: 20191106
  3. METOPROLOL SUCCINATE ER 25MG ACTAVIS [Suspect]
     Active Substance: METOPROLOL SUCCINATE
     Dates: start: 20190319, end: 20200429

REACTIONS (1)
  - Pneumonia [None]

NARRATIVE: CASE EVENT DATE: 20200429
